FAERS Safety Report 15793622 (Version 1)
Quarter: 2019Q1

REPORT INFORMATION
  Report Type: Spontaneous
  Country: US (occurrence: US)
  Receive Date: 20190105
  Receipt Date: 20190105
  Transmission Date: 20190417
  Serious: Yes (Other)
  Sender: FDA-Public Use
  Company Number: None

PATIENT
  Age: 24 Year
  Sex: Female

DRUGS (2)
  1. DULEXOTINE [Suspect]
     Active Substance: DULOXETINE
     Indication: ANXIETY
  2. DULEXOTINE [Suspect]
     Active Substance: DULOXETINE
     Indication: NEURALGIA

REACTIONS (2)
  - Alopecia [None]
  - Fear [None]

NARRATIVE: CASE EVENT DATE: 20181101
